FAERS Safety Report 5310749-4 (Version None)
Quarter: 2007Q2

REPORT INFORMATION
  Report Type: 
  Country: None (occurrence: None)
  Receive Date: 20070428
  Receipt Date: 20070416
  Transmission Date: 20071010
  Serious: Yes (Other)
  Sender: FDA-Public Use
  Company Number: BR-PFIZER INC-2007029392

PATIENT
  Sex: Male

DRUGS (2)
  1. ZITHROMAX (SINGLE DOSE) [Suspect]
     Indication: TONSILLITIS
     Route: 048
     Dates: start: 20070411, end: 20070411
  2. ALL OTHER THERAPEUTIC PRODUCTS [Concomitant]
     Route: 048

REACTIONS (11)
  - AGITATION [None]
  - ANXIETY [None]
  - BURNING SENSATION [None]
  - DIARRHOEA [None]
  - FEELING COLD [None]
  - PARAESTHESIA [None]
  - STOMACH DISCOMFORT [None]
  - TACHYCARDIA [None]
  - TACHYPNOEA [None]
  - TREMOR [None]
  - VERTIGO [None]
